FAERS Safety Report 8819343 (Version 1)
Quarter: 2012Q4

REPORT INFORMATION
  Report Type: Spontaneous
  Country: PL (occurrence: None)
  Receive Date: 20121003
  Receipt Date: 20121003
  Transmission Date: 20130627
  Serious: Yes (Other)
  Sender: FDA-Public Use
  Company Number: FK201202837

PATIENT
  Age: 25 Year
  Sex: Male

DRUGS (1)
  1. BLEOMYCIN [Suspect]
     Indication: TESTICULAR SEMINOMA (PURE)

REACTIONS (2)
  - Hepatitis B [None]
  - Leukopenia [None]
